FAERS Safety Report 5523717-4 (Version None)
Quarter: 2007Q4

REPORT INFORMATION
  Report Type: 
  Country: None (occurrence: None)
  Receive Date: 20071121
  Receipt Date: 20071115
  Transmission Date: 20080405
  Serious: Yes (Other)
  Sender: FDA-Public Use
  Company Number: US-JNJFOC-20071106921

PATIENT
  Age: 20 Year
  Sex: Female

DRUGS (1)
  1. ORTHO EVRA [Suspect]
     Indication: CONTRACEPTION

REACTIONS (5)
  - DYSMENORRHOEA [None]
  - FATIGUE [None]
  - HEART RATE IRREGULAR [None]
  - MIGRAINE [None]
  - OLIGOMENORRHOEA [None]
